FAERS Safety Report 9454234 (Version 1)
Quarter: 2013Q3

REPORT INFORMATION
  Report Type: Report from Study
  Country: US (occurrence: US)
  Receive Date: 20130812
  Receipt Date: 20130812
  Transmission Date: 20140515
  Serious: Yes (Other)
  Sender: FDA-Public Use
  Company Number: US-ABBOTT-13P-163-1129297-00

PATIENT
  Age: 33 Year
  Sex: Male

DRUGS (6)
  1. HUMIRA [Suspect]
     Indication: COLITIS ULCERATIVE
     Dates: start: 20130605
  2. HUMIRA [Suspect]
     Dates: start: 20130619, end: 20130619
  3. PREDNISONE [Concomitant]
     Indication: PRODUCT USED FOR UNKNOWN INDICATION
  4. PREDNISONE [Concomitant]
     Dosage: WEANING
  5. PREDNISONE [Concomitant]
     Dosage: TAPER
  6. PREDNISONE [Concomitant]
     Dosage: TAPER DURING HUMIRA

REACTIONS (4)
  - Gastrointestinal disorder [Unknown]
  - Abdominal pain [Recovering/Resolving]
  - Transfusion [Unknown]
  - Colitis ulcerative [Unknown]
